FAERS Safety Report 19567124 (Version 1)
Quarter: 2021Q3

REPORT INFORMATION
  Report Type: Spontaneous
  Country: ES (occurrence: ES)
  Receive Date: 20210716
  Receipt Date: 20210716
  Transmission Date: 20211014
  Serious: Yes (Life-Threatening, Hospitalization)
  Sender: FDA-Public Use
  Company Number: ES-EXELIXIS-CABO-21042381

PATIENT
  Age: 69 Year
  Sex: Male

DRUGS (7)
  1. CABOMETYX [Suspect]
     Active Substance: CABOZANTINIB S-MALATE
     Dosage: 40 MG, QD
     Dates: start: 201810, end: 201904
  2. CABOMETYX [Suspect]
     Active Substance: CABOZANTINIB S-MALATE
     Dosage: 40 MG, 3WEEKS ON AND 1 WEEK OFF
     Dates: start: 201904, end: 201909
  3. NIVOLUMAB [Suspect]
     Active Substance: NIVOLUMAB
     Indication: METASTATIC RENAL CELL CARCINOMA
     Dosage: 240 MG, Q2WEEKS
     Dates: start: 20181015, end: 201904
  4. ALLOPURINOL. [Concomitant]
     Active Substance: ALLOPURINOL
     Indication: HYPERURICAEMIA
  5. PARACETAMOL [Concomitant]
     Active Substance: ACETAMINOPHEN
     Indication: PAIN
  6. VALSARTAN. [Concomitant]
     Active Substance: VALSARTAN
     Indication: HYPERTENSION
  7. CABOMETYX [Suspect]
     Active Substance: CABOZANTINIB S-MALATE
     Indication: METASTATIC RENAL CELL CARCINOMA
     Dosage: 60 MG, QD
     Dates: start: 20180730, end: 201809

REACTIONS (14)
  - Chest pain [Recovering/Resolving]
  - Mucosal inflammation [Recovered/Resolved]
  - Atrial fibrillation [Recovering/Resolving]
  - Pancytopenia [Recovering/Resolving]
  - Hyperglycaemia [Recovering/Resolving]
  - Hallucination [Recovering/Resolving]
  - Acute kidney injury [Recovering/Resolving]
  - Hypertension [Recovering/Resolving]
  - Coma scale abnormal [Recovering/Resolving]
  - Metabolic acidosis [Recovering/Resolving]
  - Asthenia [Recovering/Resolving]
  - Palmar-plantar erythrodysaesthesia syndrome [Recovering/Resolving]
  - Neuropathy peripheral [Recovering/Resolving]
  - Haemodynamic instability [Recovering/Resolving]

NARRATIVE: CASE EVENT DATE: 201809
